FAERS Safety Report 24579170 (Version 1)
Quarter: 2024Q4

REPORT INFORMATION
  Report Type: Spontaneous
  Country: FR (occurrence: FR)
  Receive Date: 20241105
  Receipt Date: 20241105
  Transmission Date: 20250115
  Serious: Yes (Hospitalization)
  Sender: BOEHRINGER INGELHEIM
  Company Number: None

PATIENT
  Age: 86 Year
  Sex: Male
  Weight: 67 kg

DRUGS (3)
  1. OFEV [Suspect]
     Active Substance: NINTEDANIB
     Indication: Pulmonary fibrosis
     Route: 048
     Dates: start: 20220221, end: 202407
  2. OFEV [Suspect]
     Active Substance: NINTEDANIB
     Route: 048
     Dates: start: 20240916
  3. MITOMYCIN [Suspect]
     Active Substance: MITOMYCIN
     Indication: Prostate cancer
     Dates: start: 20240910, end: 20241001

REACTIONS (1)
  - Pemphigus [Recovering/Resolving]

NARRATIVE: CASE EVENT DATE: 20241001
